FAERS Safety Report 12259120 (Version 1)
Quarter: 2016Q2

REPORT INFORMATION
  Report Type: Spontaneous
  Country: US (occurrence: US)
  Receive Date: 20160412
  Receipt Date: 20160412
  Transmission Date: 20160815
  Serious: No
  Sender: FDA-Public Use
  Company Number: US-SA-2015SA065518

PATIENT
  Age: 67 Year
  Sex: Male
  Weight: 99 kg

DRUGS (3)
  1. ALLEGRA [Suspect]
     Active Substance: FEXOFENADINE HYDROCHLORIDE
     Indication: HYPERSENSITIVITY
     Dosage: TAKEN FROM: 1 YEAR
     Route: 048
     Dates: start: 20150513
  2. ALLEGRA [Suspect]
     Active Substance: FEXOFENADINE HYDROCHLORIDE
     Indication: HYPERSENSITIVITY
     Dosage: TAKEN FROM: 1 YEAR
     Route: 048
     Dates: start: 2013, end: 20130509
  3. GLUCOSAMINE [Suspect]
     Active Substance: GLUCOSAMINE
     Route: 065

REACTIONS (2)
  - Accidental overdose [Unknown]
  - Wrong drug administered [Unknown]
